FAERS Safety Report 7509288-1 (Version None)
Quarter: 2011Q2

REPORT INFORMATION
  Report Type: 
  Country: None (occurrence: None)
  Receive Date: 20110527
  Receipt Date: 20110519
  Transmission Date: 20111010
  Serious: Yes (Hospitalization)
  Sender: FDA-Public Use
  Company Number: FR-ROCHE-778573

PATIENT
  Sex: Male

DRUGS (10)
  1. RAMIPRIL [Concomitant]
  2. INTRON A [Suspect]
     Dosage: DOSE: 2700 KIU, FREQUENCY: ONCE
     Route: 058
     Dates: start: 20110218, end: 20110218
  3. ACETAMINOPHEN [Concomitant]
     Dosage: DRUG: PERFALGAN 10MG/ML, FREQUENCY: ONCE,
     Route: 042
     Dates: start: 20110218, end: 20110218
  4. FORLAX [Concomitant]
     Dosage: 2 DAILY, DRUG NAME: FORLAX(MACROGOL 4000)
  5. TRAMADOL HCL [Concomitant]
     Dosage: DRUG: TOPALGIC 100,  2 DAILY
  6. AVASTIN [Suspect]
     Dosage: DRUG: AVASTIN 25MG/ML, FREQUENCY: ONCE, FORM: INFUSION
     Route: 042
     Dates: start: 20110218, end: 20110218
  7. RABEPRAZOLE SODIUM [Concomitant]
     Dosage: FREQUENCY: DAILY
  8. ONDANSETRON [Concomitant]
     Dosage: FREQUENCY: ONCE
     Route: 042
     Dates: start: 20110218, end: 20110218
  9. CRESTOR [Concomitant]
     Dosage: FREQUENCY: DAILY
  10. PREVISCAN [Concomitant]

REACTIONS (3)
  - HYPOTENSION [None]
  - CHOKING [None]
  - ATRIAL FIBRILLATION [None]
